FAERS Safety Report 9271872 (Version 1)
Quarter: 2013Q2

REPORT INFORMATION
  Report Type: Spontaneous
  Country: US (occurrence: US)
  Receive Date: 20130506
  Receipt Date: 20130506
  Transmission Date: 20140414
  Serious: No
  Sender: FDA-Public Use
  Company Number: US-PFIZER INC-2013138585

PATIENT
  Age: 84 Year
  Sex: Female
  Weight: 68.03 kg

DRUGS (5)
  1. CELEBREX [Suspect]
     Indication: ARTHRITIS
     Dosage: 200 MG, DAILY
     Route: 048
     Dates: start: 201304
  2. GLYBURIDE [Concomitant]
     Indication: DIABETES MELLITUS
     Dosage: 1 MG, UNK
  3. QUINAPRIL [Concomitant]
     Indication: HYPERTENSION
     Dosage: 40 MG, DAILY
  4. AMLODIPINE [Concomitant]
     Indication: HYPERTENSION
     Dosage: 10 MG, DAILY
  5. TEKTURNA [Concomitant]
     Indication: HYPERTENSION
     Dosage: 150 MG, UNK

REACTIONS (1)
  - Drug ineffective [Unknown]
